FAERS Safety Report 24051543 (Version 2)
Quarter: 2024Q3

REPORT INFORMATION
  Report Type: Spontaneous
  Country: US (occurrence: US)
  Receive Date: 20240704
  Receipt Date: 20240711
  Transmission Date: 20241017
  Serious: No
  Sender: PFIZER
  Company Number: US-PFIZER INC-202400206307

PATIENT
  Age: 76 Year
  Sex: Female

DRUGS (13)
  1. XELJANZ XR [Interacting]
     Active Substance: TOFACITINIB CITRATE
     Dosage: 11 MG
  2. PROTONIX [Interacting]
     Active Substance: PANTOPRAZOLE SODIUM
     Dosage: UNK
  3. CARBIDOPA [Interacting]
     Active Substance: CARBIDOPA
     Dosage: UNK
  4. CELEBREX [Interacting]
     Active Substance: CELECOXIB
     Dosage: UNK
  5. DICLOFENAC [Interacting]
     Active Substance: DICLOFENAC
     Dosage: UNK
  6. GABAPENTIN [Interacting]
     Active Substance: GABAPENTIN
     Dosage: UNK
  7. LEFLUNOMIDE [Interacting]
     Active Substance: LEFLUNOMIDE
     Dosage: UNK
  8. PREDNISONE [Interacting]
     Active Substance: PREDNISONE
     Dosage: UNK
  9. PRIMIDONE [Interacting]
     Active Substance: PRIMIDONE
     Dosage: UNK
  10. PROPRANOLOL [Interacting]
     Active Substance: PROPRANOLOL HYDROCHLORIDE
     Dosage: UNK
  11. RALOXIFENE [Interacting]
     Active Substance: RALOXIFENE
     Dosage: UNK
  12. REMERON [Interacting]
     Active Substance: MIRTAZAPINE
     Dosage: UNK
  13. SERTRALINE [Interacting]
     Active Substance: SERTRALINE HYDROCHLORIDE
     Dosage: UNK

REACTIONS (1)
  - Drug interaction [Unknown]
